FAERS Safety Report 9029338 (Version 1)
Quarter: 2013Q1

REPORT INFORMATION
  Report Type: Spontaneous
  Country: ES (occurrence: ES)
  Receive Date: 20130125
  Receipt Date: 20130125
  Transmission Date: 20140127
  Serious: Yes (Other)
  Sender: FDA-Public Use
  Company Number: ES-MILLENNIUM PHARMACEUTICALS, INC.-2013-00577

PATIENT
  Sex: 0

DRUGS (3)
  1. VELCADE [Suspect]
     Indication: PLASMA CELL MYELOMA
     Dosage: 1.3 MG, UNK
     Route: 058
     Dates: start: 201210
  2. MELPHALAN [Concomitant]
     Indication: PLASMA CELL MYELOMA
     Dosage: UNK
  3. PREDNISONE [Concomitant]
     Indication: PLASMA CELL MYELOMA

REACTIONS (2)
  - Impaired gastric emptying [Not Recovered/Not Resolved]
  - Urinary retention [Not Recovered/Not Resolved]
